FAERS Safety Report 12472087 (Version 1)
Quarter: 2016Q2

REPORT INFORMATION
  Report Type: Spontaneous
  Country: DE (occurrence: DE)
  Receive Date: 20160616
  Receipt Date: 20160616
  Transmission Date: 20160815
  Serious: Yes (Other)
  Sender: FDA-Public Use
  Company Number: DE-CELGENEUS-DEU-2016061196

PATIENT
  Age: 38 Year
  Sex: Female

DRUGS (3)
  1. LONQUEX [Suspect]
     Active Substance: LIPEGFILGRASTIM
     Indication: LEUKOPENIA
     Dosage: 25 MILLIGRAM
     Route: 058
     Dates: start: 20160526, end: 20160526
  2. LYRICA [Concomitant]
     Active Substance: PREGABALIN
     Indication: PAIN
     Route: 065
  3. ABRAXANE [Suspect]
     Active Substance: PACLITAXEL
     Indication: BREAST CANCER METASTATIC
     Route: 041

REACTIONS (11)
  - Movement disorder [Unknown]
  - Swelling face [Recovered/Resolved]
  - Dizziness [Not Recovered/Not Resolved]
  - Tinnitus [Not Recovered/Not Resolved]
  - Peripheral swelling [Recovering/Resolving]
  - Phlebitis [Not Recovered/Not Resolved]
  - Fatigue [Not Recovered/Not Resolved]
  - Respiratory distress [Recovered/Resolved]
  - Abdominal distension [Not Recovered/Not Resolved]
  - Bone pain [Recovered/Resolved]
  - Arthralgia [Recovered/Resolved]

NARRATIVE: CASE EVENT DATE: 201605
